FAERS Safety Report 9038971 (Version 1)
Quarter: 2013Q1

REPORT INFORMATION
  Report Type: Spontaneous
  Country: US (occurrence: None)
  Receive Date: 20130123
  Receipt Date: 20130123
  Transmission Date: 20140127
  Serious: Yes (Other)
  Sender: FDA-Public Use
  Company Number: None

PATIENT
  Age: 4 Year
  Sex: Male
  Weight: 15.9 kg

DRUGS (2)
  1. MONTELUKAST SODIUM [Suspect]
     Indication: ASTHMA
     Dosage: 4 MG  1 X PER DAY
     Route: 048
     Dates: start: 20120918, end: 20121016
  2. MONTELUKAST SODIUM [Suspect]
     Indication: MULTIPLE ALLERGIES
     Dosage: 4 MG  1 X PER DAY
     Route: 048
     Dates: start: 20120918, end: 20121016

REACTIONS (10)
  - Rash [None]
  - Mood altered [None]
  - Aggression [None]
  - Product substitution issue [None]
  - Agitation [None]
  - Aggression [None]
  - Insomnia [None]
  - Aphagia [None]
  - Psychomotor hyperactivity [None]
  - Conversion disorder [None]
